FAERS Safety Report 5758218-1 (Version None)
Quarter: 2008Q2

REPORT INFORMATION
  Report Type: 
  Country: None (occurrence: None)
  Receive Date: 20080530
  Receipt Date: 20080516
  Transmission Date: 20081010
  Serious: Yes (Hospitalization)
  Sender: FDA-Public Use
  Company Number: DSJ-2008-05975

PATIENT
  Age: 73 Year
  Sex: Female

DRUGS (4)
  1. OLMESARTAN MEDOXOMIL [Suspect]
     Indication: HYPERTENSION
     Dosage: 20 MG, PER ORAL
     Route: 048
     Dates: end: 20080507
  2. CALBLOCK (AZELNIDIPINE) (TABLET) (AZELNIDIPINE) [Concomitant]
  3. GOKUMISIN (URSODEOXYCHOLIC ACID) (TABLET) (URSODEOXYCHOLIC ACID) [Concomitant]
  4. URSO (URSODEOXYCHOLIC ACID) (URSODEOXYCHOLIC ACID) [Concomitant]

REACTIONS (1)
  - PLATELET COUNT DECREASED [None]
